FAERS Safety Report 5997816-7 (Version None)
Quarter: 2008Q4

REPORT INFORMATION
  Report Type: 
  Country: None (occurrence: None)
  Receive Date: 20081212
  Receipt Date: 20081125
  Transmission Date: 20090506
  Serious: No
  Sender: FDA-Public Use
  Company Number: US-ABBOTT-08P-163-0489744-00

PATIENT
  Sex: Female
  Weight: 47.67 kg

DRUGS (9)
  1. HUMIRA [Suspect]
     Indication: DRUG USE FOR UNKNOWN INDICATION
     Dates: start: 20030101
  2. THYROID TAB [Concomitant]
     Indication: THYROID DISORDER
  3. AMIODARONE HCL [Concomitant]
     Indication: CARDIAC DISORDER
  4. LISINOPRIL [Concomitant]
     Indication: BLOOD PRESSURE
  5. RISEDRONATE SODIUM [Concomitant]
     Indication: OSTEOPOROSIS
  6. ACETYLSALICYLIC ACID SRT [Concomitant]
     Indication: DRUG USE FOR UNKNOWN INDICATION
  7. CARVEDILOL [Concomitant]
     Indication: BLOOD PRESSURE
  8. POTASSIUM CHLORIDE [Concomitant]
     Indication: DRUG USE FOR UNKNOWN INDICATION
  9. HYDRALAZINE HCL [Concomitant]
     Indication: DRUG USE FOR UNKNOWN INDICATION

REACTIONS (4)
  - ANISOCYTOSIS [None]
  - FATIGUE [None]
  - LYMPHOPENIA [None]
  - NAUSEA [None]
